FAERS Safety Report 20730783 (Version 1)
Quarter: 2022Q2

REPORT INFORMATION
  Report Type: Spontaneous
  Country: US (occurrence: None)
  Receive Date: 20220420
  Receipt Date: 20220420
  Transmission Date: 20220720
  Serious: No
  Sender: FDA-Public Use
  Company Number: None

PATIENT
  Sex: Female

DRUGS (1)
  1. INFLECTRA [Suspect]
     Active Substance: INFLIXIMAB-DYYB
     Indication: Colitis microscopic
     Dosage: OTHER STRENGTH : 100MG/VL;?OTHER FREQUENCY : EVERY 8 WEEKS;?
     Route: 042
     Dates: start: 202107

REACTIONS (3)
  - Disease recurrence [None]
  - Diarrhoea [None]
  - Muscle spasms [None]
